FAERS Safety Report 18542214 (Version 1)
Quarter: 2020Q4

REPORT INFORMATION
  Report Type: Other
  Country: FR (occurrence: FR)
  Receive Date: 20201124
  Receipt Date: 20201124
  Transmission Date: 20210114
  Serious: Yes (Other)
  Sender: FDA-Public Use
  Company Number: FR-NOVA LABORATORIES LIMITED-2096252

PATIENT
  Age: 20 Year
  Sex: Female

DRUGS (2)
  1. PREDNISOLONE. [Suspect]
     Active Substance: PREDNISOLONE
  2. PURIXAN [Suspect]
     Active Substance: MERCAPTOPURINE
     Indication: OFF LABEL USE

REACTIONS (2)
  - Leukopenia [Unknown]
  - Off label use [None]
